FAERS Safety Report 4588185-8 (Version None)
Quarter: 2005Q1

REPORT INFORMATION
  Report Type: 
  Country: None (occurrence: None)
  Receive Date: 20050221
  Receipt Date: 20050117
  Transmission Date: 20050727
  Serious: Yes (Hospitalization)
  Sender: FDA-Public Use
  Company Number: JP-GLAXOSMITHKLINE-B0365022A

PATIENT
  Age: 52 Year
  Sex: Female
  Weight: 56 kg

DRUGS (12)
  1. VALTREX [Suspect]
     Indication: HERPES ZOSTER
     Dosage: 1000MG PER DAY
     Route: 048
     Dates: start: 20050111, end: 20050113
  2. CALTAN [Concomitant]
     Indication: HYPERPHOSPHATAEMIA
     Dosage: 1500MG PER DAY
     Route: 048
  3. RENAGEL [Concomitant]
     Indication: HYPERPHOSPHATAEMIA
     Dosage: 750MG PER DAY
     Route: 048
     Dates: start: 20040421
  4. CHOLEBRINE [Concomitant]
     Indication: HYPERLIPIDAEMIA
     Dosage: 500MG PER DAY
     Route: 048
  5. BLOPRESS [Concomitant]
     Indication: HYPERTENSION
     Dosage: 12MG PER DAY
     Route: 048
  6. ARTIST [Concomitant]
     Indication: HYPERTENSION
     Dosage: 10MG PER DAY
     Route: 048
  7. ADALAT [Concomitant]
     Indication: HYPERTENSION
     Dosage: 40MG PER DAY
     Route: 048
  8. CARDENALIN [Concomitant]
     Indication: HYPERTENSION
     Dosage: 8MG PER DAY
     Route: 048
  9. POLYFUL [Concomitant]
     Indication: CONSTIPATION
     Dosage: 3.6G PER DAY
     Route: 048
     Dates: start: 20040421
  10. HUMALOG [Concomitant]
     Indication: DIABETES MELLITUS
     Route: 058
  11. EPOGIN [Concomitant]
     Indication: NEPHROGENIC ANAEMIA
     Dosage: 6000IU PER DAY
     Route: 042
     Dates: start: 20040224
  12. FESIN [Concomitant]
     Indication: IRON DEFICIENCY ANAEMIA
     Route: 042
     Dates: start: 20040224

REACTIONS (1)
  - MENTAL DISORDER [None]
